FAERS Safety Report 7982517-6 (Version None)
Quarter: 2011Q4

REPORT INFORMATION
  Report Type: 
  Country: None (occurrence: None)
  Receive Date: 20111215
  Receipt Date: 20111214
  Transmission Date: 20120403
  Serious: Yes (Death, Other)
  Sender: FDA-Public Use
  Company Number: PHHO2011AU14474

PATIENT
  Sex: Female

DRUGS (1)
  1. AFINITOR [Suspect]
     Indication: RECTAL CANCER
     Dosage: 5 MG, UNK

REACTIONS (4)
  - NEOPLASM PROGRESSION [None]
  - NEOPLASM MALIGNANT [None]
  - PNEUMONIA [None]
  - THROMBOCYTOPENIA [None]
